FAERS Safety Report 6090956-6 (Version None)
Quarter: 2009Q1

REPORT INFORMATION
  Report Type: 
  Country: None (occurrence: None)
  Receive Date: 20090219
  Receipt Date: 20090219
  Transmission Date: 20090719
  Serious: Yes (Hospitalization)
  Sender: FDA-Public Use
  Company Number: None

PATIENT
  Age: 77 Year

DRUGS (1)
  1. MINOCYCLINE HCL [Suspect]
     Dosage: 50 MG EVERY DAY PO
     Route: 048

REACTIONS (10)
  - ALTERED STATE OF CONSCIOUSNESS [None]
  - ASTHENIA [None]
  - ATAXIA [None]
  - BLOOD GLUCOSE INCREASED [None]
  - BLOOD PRESSURE INCREASED [None]
  - CONFUSIONAL STATE [None]
  - GAIT DISTURBANCE [None]
  - HYPOAESTHESIA [None]
  - MENTAL STATUS CHANGES [None]
  - PARAESTHESIA [None]
